FAERS Safety Report 6815673-3 (Version None)
Quarter: 2010Q3

REPORT INFORMATION
  Report Type: 
  Country: None (occurrence: None)
  Receive Date: 20100702
  Receipt Date: 20100625
  Transmission Date: 20110219
  Serious: Yes (Other)
  Sender: FDA-Public Use
  Company Number: AT-ABBOTT-10P-009-0653879-00

PATIENT
  Age: 28 Year
  Sex: Female

DRUGS (1)
  1. HUMIRA [Suspect]
     Indication: PRODUCT USED FOR UNKNOWN INDICATION

REACTIONS (3)
  - BLOOD GASES ABNORMAL [None]
  - CARDIAC FUNCTION TEST ABNORMAL [None]
  - GESTATIONAL DIABETES [None]
